FAERS Safety Report 23394965 (Version 3)
Quarter: 2024Q2

REPORT INFORMATION
  Report Type: Spontaneous
  Country: JP (occurrence: JP)
  Receive Date: 20240112
  Receipt Date: 20240419
  Transmission Date: 20240716
  Serious: Yes (Death, Other)
  Sender: FDA-Public Use
  Company Number: JP-TAKEDA-2024TJP000235

PATIENT
  Age: 9 Decade
  Sex: Male

DRUGS (1)
  1. VONVENDI [Suspect]
     Active Substance: VON WILLEBRAND FACTOR (RECOMBINANT)
     Indication: Haemorrhagic diathesis
     Dosage: UNK
     Route: 042

REACTIONS (2)
  - Death [Fatal]
  - Therapeutic product effect incomplete [Unknown]
